FAERS Safety Report 7920357-4 (Version None)
Quarter: 2011Q4

REPORT INFORMATION
  Report Type: 
  Country: None (occurrence: None)
  Receive Date: 20111117
  Receipt Date: 20111107
  Transmission Date: 20120403
  Serious: Yes (Hospitalization, Other)
  Sender: FDA-Public Use
  Company Number: FR-AMGEN-FRASP2011055993

PATIENT
  Age: 60 Year
  Sex: Female

DRUGS (6)
  1. HUMIRA [Suspect]
     Dosage: 40 MG, CYCLIC, EVERY 14 DAYS
     Dates: end: 20090327
  2. SULFASALAZINE [Concomitant]
     Indication: ARTHRALGIA
     Dosage: UNK
     Dates: start: 20010101
  3. REMICADE [Suspect]
     Indication: SPONDYLOARTHROPATHY
     Dosage: 300 MG VARYING BY CYCLE (CYCLE OF 6 TO 8 WEEKS)
     Route: 042
     Dates: start: 20090327, end: 20101228
  4. ENBREL [Suspect]
     Indication: PRODUCT USED FOR UNKNOWN INDICATION
     Dosage: 50 MG, WEEKLY
     Route: 058
     Dates: start: 20070629, end: 20080620
  5. FLURBIPROFEN [Concomitant]
     Indication: SPONDYLOARTHROPATHY
     Dosage: 100 MG TO 300 MG DAILY
     Route: 048
     Dates: start: 20100101, end: 20101201
  6. HUMIRA [Suspect]
     Indication: SPONDYLOARTHROPATHY
     Dosage: 40 MG, CYCLIC, EVERY 14 DAYS
     Route: 058
     Dates: start: 20080620, end: 20081001

REACTIONS (4)
  - DRUG INEFFECTIVE [None]
  - PALPITATIONS [None]
  - RECTAL CANCER [None]
  - RECTAL HAEMORRHAGE [None]
